FAERS Safety Report 18323967 (Version 1)
Quarter: 2020Q3

REPORT INFORMATION
  Report Type: Spontaneous
  Country: GB (occurrence: GB)
  Receive Date: 20200929
  Receipt Date: 20200929
  Transmission Date: 20201103
  Serious: Yes (Disabling)
  Sender: FDA-Public Use
  Company Number: GB-MYLANLABS-2020M1081216

PATIENT
  Age: 21 Year
  Sex: Male
  Weight: 87 kg

DRUGS (1)
  1. CITALOPRAM [Suspect]
     Active Substance: CITALOPRAM HYDROBROMIDE
     Indication: DEPRESSION SUICIDAL
     Dosage: 40 MILLIGRAM, QD
     Route: 048
     Dates: start: 201907

REACTIONS (4)
  - Sexual dysfunction [Not Recovered/Not Resolved]
  - Male orgasmic disorder [Unknown]
  - Erectile dysfunction [Unknown]
  - Libido decreased [Unknown]

NARRATIVE: CASE EVENT DATE: 201908
